FAERS Safety Report 7769068-9 (Version None)
Quarter: 2011Q3

REPORT INFORMATION
  Report Type: 
  Country: None (occurrence: None)
  Receive Date: 20110922
  Receipt Date: 20100816
  Transmission Date: 20111222
  Serious: Yes (Other)
  Sender: FDA-Public Use
  Company Number: US-ASTRAZENECA-2006UW11898

PATIENT
  Age: 40 Year
  Sex: Female
  Weight: 77.1 kg

DRUGS (19)
  1. SEROQUEL [Suspect]
     Indication: DEPRESSION
     Route: 048
     Dates: start: 20010101
  2. SEROQUEL [Suspect]
     Route: 048
     Dates: start: 20040122
  3. RISPERDAL [Concomitant]
     Dates: start: 20010101
  4. SEROQUEL [Suspect]
     Dosage: 200-600 MG
     Route: 048
     Dates: start: 20020918
  5. ZYPREXA [Suspect]
     Route: 048
     Dates: start: 20020630, end: 20020918
  6. GLUCOPHAGE [Concomitant]
     Dosage: 1000-2000 MG
     Dates: start: 20050908
  7. CRESTOR [Concomitant]
     Indication: HYPERLIPIDAEMIA
     Dates: start: 20020101
  8. SEROQUEL [Suspect]
     Dosage: 200-600 MG
     Route: 048
     Dates: start: 20020918
  9. SEROQUEL [Suspect]
     Route: 048
     Dates: start: 20040122
  10. ZYPREXA [Suspect]
     Route: 048
     Dates: start: 20021201, end: 20030601
  11. RISPERDAL [Concomitant]
     Dates: start: 20000101
  12. LAMICTAL [Concomitant]
     Dates: start: 20020612
  13. SEROQUEL [Suspect]
     Indication: BORDERLINE PERSONALITY DISORDER
     Route: 048
     Dates: start: 20010101
  14. RISPERDAL [Concomitant]
     Dates: start: 20010101
  15. ZYPREXA [Suspect]
     Route: 048
  16. KLONOPIN [Concomitant]
     Dosage: 1 MG AM AND HALF MG NIGHT
     Dates: start: 20000101
  17. CRESTOR [Concomitant]
     Indication: BLOOD CHOLESTEROL INCREASED
     Dates: start: 20020101
  18. EFFEXOR XR [Concomitant]
     Dates: start: 20000101
  19. EFFEXOR XR [Concomitant]
     Dosage: 225-300 MG
     Dates: start: 20020612

REACTIONS (8)
  - HYPERGLYCAEMIA [None]
  - SUICIDE ATTEMPT [None]
  - BLOOD CHOLESTEROL INCREASED [None]
  - TYPE 2 DIABETES MELLITUS [None]
  - HYPERLIPIDAEMIA [None]
  - GLYCOSURIA [None]
  - BLOOD TRIGLYCERIDES INCREASED [None]
  - DIABETES MELLITUS INADEQUATE CONTROL [None]
